FAERS Safety Report 17418042 (Version 1)
Quarter: 2020Q1

REPORT INFORMATION
  Report Type: Spontaneous
  Country: FR (occurrence: FR)
  Receive Date: 20200214
  Receipt Date: 20200214
  Transmission Date: 20200409
  Serious: Yes (Life-Threatening, Hospitalization)
  Sender: FDA-Public Use
  Company Number: FR-SUN PHARMACEUTICAL INDUSTRIES LTD-2020RR-236593

PATIENT
  Age: 69 Year
  Sex: Male
  Weight: 73 kg

DRUGS (3)
  1. OXALIPLATIN. [Suspect]
     Active Substance: OXALIPLATIN
     Indication: COLORECTAL ADENOCARCINOMA
     Dosage: CYCLICAL
     Route: 042
     Dates: start: 20191014, end: 20191120
  2. FLUOROURACILE [Suspect]
     Active Substance: FLUOROURACIL
     Indication: COLORECTAL ADENOCARCINOMA
     Dosage: CYCLICAL
     Route: 042
     Dates: start: 20191014, end: 20191120
  3. AVASTIN [Suspect]
     Active Substance: BEVACIZUMAB
     Indication: COLORECTAL ADENOCARCINOMA
     Dosage: CYCLICAL
     Route: 042
     Dates: start: 20191014, end: 20191120

REACTIONS (1)
  - Large intestine perforation [Not Recovered/Not Resolved]

NARRATIVE: CASE EVENT DATE: 20191128
